FAERS Safety Report 4440636-5 (Version None)
Quarter: 2004Q3

REPORT INFORMATION
  Report Type: 
  Country: None (occurrence: None)
  Receive Date: 20040901
  Receipt Date: 20040901
  Transmission Date: 20050211
  Serious: Yes (Hospitalization)
  Sender: FDA-Public Use
  Company Number: None

PATIENT
  Sex: Female
  Weight: 49.8957 kg

DRUGS (6)
  1. COUMADIN [Suspect]
     Indication: ARRHYTHMIA
     Dosage: PO, [PRIOR TO ADMISSION]
     Route: 048
  2. TYL #3 [Concomitant]
  3. PROTONIX [Concomitant]
  4. TOPROL-XL [Concomitant]
  5. DIGOXIN [Concomitant]
  6. DURAGESIC [Concomitant]

REACTIONS (3)
  - DRUG TOXICITY [None]
  - HAEMORRHAGE [None]
  - OEDEMA PERIPHERAL [None]
